FAERS Safety Report 5733263-0 (Version None)
Quarter: 2008Q2

REPORT INFORMATION
  Report Type: 
  Country: None (occurrence: None)
  Receive Date: 20080509
  Receipt Date: 20080502
  Transmission Date: 20081010
  Serious: Yes (Other)
  Sender: FDA-Public Use
  Company Number: A0727075A

PATIENT
  Age: 35 Year
  Sex: Male
  Weight: 90.9 kg

DRUGS (2)
  1. AMOXICILLIN + CLAVULANATE POTASSIUM [Suspect]
     Dosage: 500MG THREE TIMES PER DAY
     Route: 048
     Dates: start: 20080104, end: 20080114
  2. DEPAKOTE [Suspect]
     Dosage: 500MG TWICE PER DAY
     Route: 048
     Dates: start: 19910101

REACTIONS (1)
  - CONVULSION [None]
